FAERS Safety Report 9554000 (Version 1)
Quarter: 2013Q3

REPORT INFORMATION
  Report Type: Spontaneous
  Country: US (occurrence: US)
  Receive Date: 20130925
  Receipt Date: 20130925
  Transmission Date: 20140515
  Serious: Yes (Hospitalization)
  Sender: FDA-Public Use
  Company Number: US-GLAXOSMITHKLINE-A1042688A

PATIENT
  Age: 49 Year
  Sex: Male

DRUGS (2)
  1. TYKERB [Suspect]
     Indication: NEOPLASM MALIGNANT
     Dosage: 1250MG PER DAY
     Route: 048
     Dates: start: 20130715
  2. UNKNOWN [Concomitant]

REACTIONS (1)
  - Hospitalisation [Unknown]
